FAERS Safety Report 6333452-0 (Version None)
Quarter: 2009Q3

REPORT INFORMATION
  Report Type: 
  Country: None (occurrence: None)
  Receive Date: 20090828
  Receipt Date: 20090820
  Transmission Date: 20100115
  Serious: Yes (Hospitalization, Other)
  Sender: FDA-Public Use
  Company Number: PHHY2009JP24424

PATIENT
  Sex: Female

DRUGS (14)
  1. TEGRETOL [Suspect]
     Indication: TRIGEMINAL NEURALGIA
     Dosage: 100 MG, QD
     Route: 048
     Dates: start: 20080501, end: 20080601
  2. RINGEREAZE [Concomitant]
     Indication: TRIGEMINAL NEURALGIA
     Dosage: UNK
     Dates: start: 20080427, end: 20080601
  3. TRAZODONE HYDROCHLORIDE [Concomitant]
     Indication: TRIGEMINAL NEURALGIA
     Dosage: UNK
     Dates: start: 20080427, end: 20080601
  4. MECOBALAMIN [Concomitant]
     Indication: TRIGEMINAL NEURALGIA
     Dosage: UNK
     Dates: start: 20080427, end: 20080601
  5. TOCOPHERYL NICOTINATE [Concomitant]
     Indication: TRIGEMINAL NEURALGIA
     Dosage: UNK
     Dates: start: 20080427, end: 20080601
  6. MYSLEE [Concomitant]
     Indication: INSOMNIA
     Dosage: UNK
     Dates: start: 20080427, end: 20080601
  7. PREDONINE [Concomitant]
     Indication: IDIOPATHIC THROMBOCYTOPENIC PURPURA
     Dosage: 15 MG
     Route: 048
  8. PREDONINE [Concomitant]
     Dosage: 30 MG
     Route: 048
     Dates: start: 20080613
  9. PREDONINE [Concomitant]
     Dosage: 25 MG
     Route: 048
     Dates: start: 20080620
  10. PREDONINE [Concomitant]
     Dosage: 20 MG
     Route: 048
     Dates: start: 20080627
  11. AMLODIN [Concomitant]
     Indication: HYPERTENSION
     Dosage: 2.5 MG
     Route: 048
  12. PARIET [Concomitant]
     Dosage: 10 MG
     Route: 048
  13. SELBEX [Concomitant]
     Dosage: 3 DF
     Route: 048
  14. MAGNESIUM OXIDE [Concomitant]
     Dosage: 3 DF
     Route: 048

REACTIONS (7)
  - BLOOD LACTATE DEHYDROGENASE INCREASED [None]
  - DRUG ERUPTION [None]
  - DRUG RASH WITH EOSINOPHILIA AND SYSTEMIC SYMPTOMS [None]
  - HUMAN HERPESVIRUS 6 INFECTION [None]
  - LIVER DISORDER [None]
  - PURPURA [None]
  - RASH [None]
